FAERS Safety Report 5607425-7 (Version None)
Quarter: 2008Q1

REPORT INFORMATION
  Report Type: 
  Country: None (occurrence: None)
  Receive Date: 20080130
  Receipt Date: 20080109
  Transmission Date: 20080703
  Serious: No
  Sender: FDA-Public Use
  Company Number: US-JNJFOC-20080102476

PATIENT
  Age: 26 Year
  Sex: Female
  Weight: 65.77 kg

DRUGS (3)
  1. INVEGA [Suspect]
     Indication: BIPOLAR II DISORDER
     Route: 048
  2. LEVOXYL [Concomitant]
     Indication: HYPOTHYROIDISM
     Route: 048
  3. ZOLOFT [Concomitant]
     Indication: AFFECTIVE DISORDER
     Route: 048

REACTIONS (1)
  - DYSTONIA [None]
